FAERS Safety Report 6095301-8 (Version None)
Quarter: 2009Q1

REPORT INFORMATION
  Report Type: 
  Country: None (occurrence: None)
  Receive Date: 20090227
  Receipt Date: 20080304
  Transmission Date: 20090719
  Serious: No
  Sender: FDA-Public Use
  Company Number: A0713270A

PATIENT
  Age: 27 Year
  Sex: Male

DRUGS (5)
  1. LAMICTAL [Suspect]
     Indication: DEPRESSION
     Route: 048
     Dates: start: 20070601, end: 20070619
  2. DEPAKOTE [Concomitant]
  3. ZYPREXA [Concomitant]
  4. OXCARBAZEPINE [Concomitant]
  5. UNKNOWN MEDICATION [Concomitant]

REACTIONS (4)
  - EYELID FUNCTION DISORDER [None]
  - ORAL MUCOSAL DISCOLOURATION [None]
  - RASH [None]
  - SKIN DISCOLOURATION [None]
